FAERS Safety Report 6298817-4 (Version None)
Quarter: 2009Q3

REPORT INFORMATION
  Report Type: 
  Country: None (occurrence: None)
  Receive Date: 20090806
  Receipt Date: 20090724
  Transmission Date: 20100115
  Serious: Yes (Other)
  Sender: FDA-Public Use
  Company Number: MX-PFIZER INC-2009249566

PATIENT
  Age: 57 Year

DRUGS (3)
  1. XALATAN [Suspect]
     Dosage: UNIT DOSE: UNK; FREQUENCY: 1 ED, EVERY NIGHT;
     Route: 047
     Dates: start: 20090301
  2. TIMOLOL MALEATE [Concomitant]
     Dosage: UNK
     Route: 047
     Dates: start: 20070801
  3. CHLORPHENAMINE [Concomitant]

REACTIONS (9)
  - CHOKING SENSATION [None]
  - COUGH [None]
  - DYSPHAGIA [None]
  - DYSPHONIA [None]
  - EYELID OEDEMA [None]
  - FOOD ALLERGY [None]
  - LIP OEDEMA [None]
  - ODYNOPHAGIA [None]
  - TONGUE OEDEMA [None]
